FAERS Safety Report 25959282 (Version 1)
Quarter: 2025Q4

REPORT INFORMATION
  Report Type: Spontaneous
  Country: US (occurrence: US)
  Receive Date: 20251025
  Receipt Date: 20251025
  Transmission Date: 20260118
  Serious: No
  Sender: ABBVIE
  Company Number: US-ABBVIE-6514010

PATIENT
  Age: 24 Year
  Sex: Female
  Weight: 97 kg

DRUGS (6)
  1. LILETTA [Suspect]
     Active Substance: LEVONORGESTREL
     Indication: Contraception
     Dosage: TIME INTERVAL: AS NECESSARY: INSERTION ATTEMPTED ON 20 OCT 2025?STRENGTH - 20.4 MICROGRAM/24 HOUR...
     Route: 015
  2. HYDROXYZINE [Concomitant]
     Active Substance: HYDROXYZINE HYDROCHLORIDE
     Indication: Product used for unknown indication
     Dosage: STRENGTH - 50MG
     Route: 048
  3. ATOMOXETINE [Concomitant]
     Active Substance: ATOMOXETINE
     Indication: Product used for unknown indication
     Dosage: STRENGTH - 60MG
     Route: 048
  4. ATOMOXETINE [Concomitant]
     Active Substance: ATOMOXETINE
     Indication: Product used for unknown indication
     Dosage: STRENGTH - 40MG
     Route: 048
  5. ARIPIPRAZOLE [Concomitant]
     Active Substance: ARIPIPRAZOLE
     Indication: Product used for unknown indication
     Dosage: STRENGTH - 2MG
     Route: 048
  6. PAROXETINE HYDROCHLORIDE [Concomitant]
     Active Substance: PAROXETINE HYDROCHLORIDE
     Indication: Product used for unknown indication
     Dosage: STRENGTH - 30 MG
     Route: 048

REACTIONS (1)
  - Procedural pain [Recovering/Resolving]

NARRATIVE: CASE EVENT DATE: 20251020
